FAERS Safety Report 19969738 (Version 1)
Quarter: 2021Q4

REPORT INFORMATION
  Report Type: Spontaneous
  Country: US (occurrence: US)
  Receive Date: 20211019
  Receipt Date: 20211019
  Transmission Date: 20220303
  Serious: Yes (Other)
  Sender: FDA-Public Use
  Company Number: US-PFIZER INC-202101134182

PATIENT
  Age: 67 Year
  Sex: Female

DRUGS (2)
  1. IBRANCE [Suspect]
     Active Substance: PALBOCICLIB
     Indication: Breast cancer female
     Dosage: 125 MG, EVERY OTHER WEEK
  2. IBRANCE [Suspect]
     Active Substance: PALBOCICLIB
     Dosage: 100 MG

REACTIONS (7)
  - Pulmonary oedema [Unknown]
  - Full blood count abnormal [Unknown]
  - White blood cell count decreased [Unknown]
  - Neoplasm progression [Unknown]
  - Hernia [Unknown]
  - Dyspnoea exertional [Unknown]
  - Off label use [Unknown]
